FAERS Safety Report 8887553 (Version 1)
Quarter: 2012Q4

REPORT INFORMATION
  Report Type: Spontaneous
  Country: US (occurrence: None)
  Receive Date: 20121101
  Receipt Date: 20121101
  Transmission Date: 20130627
  Serious: Yes (Hospitalization)
  Sender: FDA-Public Use
  Company Number: None

PATIENT
  Sex: Female

DRUGS (20)
  1. ENBREL [Suspect]
     Indication: LUPUS ERYTHEMATOSUS
     Route: 058
     Dates: start: 20121001, end: 20121020
  2. ENBREL [Suspect]
     Indication: RHEUMATOID ARTHRITIS
     Route: 058
     Dates: start: 20121001, end: 20121020
  3. VITAMIN B6 [Concomitant]
  4. VITAMIN B12 [Concomitant]
  5. CALCIUM [Concomitant]
  6. COUMA DIN [Concomitant]
  7. CLINDAMYCIN HCL [Concomitant]
  8. DAPSONE [Concomitant]
  9. FLOMAX [Concomitant]
  10. FUROSOMIDE [Concomitant]
  11. FOLIC ACID [Concomitant]
  12. GLUCOSAMINE [Concomitant]
  13. HYDROCHLOROTHIAZIDE [Concomitant]
  14. LAMOTRIPLNE [Concomitant]
  15. METFORMIN HCL [Concomitant]
  16. LORAZEPAM [Concomitant]
  17. PAROXETINE HCL [Concomitant]
  18. POTASSIUM CHLORIDE [Concomitant]
  19. PREDNISONE [Concomitant]
  20. TRAZODONE HCL [Concomitant]

REACTIONS (1)
  - Convulsion [None]
